FAERS Safety Report 6430028-1 (Version None)
Quarter: 2009Q4

REPORT INFORMATION
  Report Type: 
  Country: None (occurrence: None)
  Receive Date: 20091104
  Receipt Date: 20091104
  Transmission Date: 20100525
  Serious: No
  Sender: FDA-Public Use
  Company Number: None

PATIENT
  Age: 53 Year
  Sex: Female
  Weight: 66.6788 kg

DRUGS (1)
  1. CHANTIX [Suspect]
     Indication: SMOKING CESSATION THERAPY
     Dosage: INCREASING DOSAGE DAILY PO  TWO AND HALF WEEKS
     Route: 048
     Dates: start: 20090708, end: 20090726

REACTIONS (9)
  - ACCIDENT [None]
  - ANGER [None]
  - ANXIETY [None]
  - ASTHENIA [None]
  - DEPRESSED LEVEL OF CONSCIOUSNESS [None]
  - DEPRESSION [None]
  - FEAR [None]
  - PAIN [None]
  - POSTMENOPAUSAL HAEMORRHAGE [None]
